FAERS Safety Report 6744714-7 (Version None)
Quarter: 2010Q2

REPORT INFORMATION
  Report Type: 
  Country: None (occurrence: None)
  Receive Date: 20100526
  Receipt Date: 20100526
  Transmission Date: 20101027
  Serious: Yes (Other)
  Sender: FDA-Public Use
  Company Number: None

PATIENT
  Age: 59 Year
  Sex: Male
  Weight: 118.2 kg

DRUGS (1)
  1. LAMICTAL ODT [Suspect]

REACTIONS (3)
  - PRODUCT QUALITY ISSUE [None]
  - PRODUCT TASTE ABNORMAL [None]
  - RASH [None]
